FAERS Safety Report 12855361 (Version 1)
Quarter: 2016Q4

REPORT INFORMATION
  Report Type: Spontaneous
  Country: KR (occurrence: KR)
  Receive Date: 20161017
  Receipt Date: 20161017
  Transmission Date: 20170207
  Serious: Yes (Death, Other)
  Sender: FDA-Public Use
  Company Number: PHHY2016KR140532

PATIENT
  Age: 65 Year
  Sex: Male

DRUGS (6)
  1. KALETRA [Suspect]
     Active Substance: LOPINAVIR\RITONAVIR
     Indication: MIDDLE EAST RESPIRATORY SYNDROME
     Route: 065
  2. AZITHROMYCIN ANHYDROUS. [Suspect]
     Active Substance: AZITHROMYCIN ANHYDROUS
     Indication: MIDDLE EAST RESPIRATORY SYNDROME
     Dosage: UNK
     Route: 065
  3. TEICOPLANIN [Suspect]
     Active Substance: TEICOPLANIN
     Indication: MIDDLE EAST RESPIRATORY SYNDROME
     Route: 065
  4. MEROPENEM. [Suspect]
     Active Substance: MEROPENEM
     Indication: MIDDLE EAST RESPIRATORY SYNDROME
     Route: 065
  5. PIPERACILLIN AND TAZOBACTAM [Suspect]
     Active Substance: PIPERACILLIN SODIUM\TAZOBACTAM SODIUM
     Indication: MIDDLE EAST RESPIRATORY SYNDROME
     Route: 065
  6. RIBAVARIN [Suspect]
     Active Substance: RIBAVIRIN
     Indication: MIDDLE EAST RESPIRATORY SYNDROME
     Route: 065

REACTIONS (7)
  - Diarrhoea [Fatal]
  - Disease progression [Fatal]
  - Multiple organ dysfunction syndrome [Fatal]
  - Right ventricular failure [Fatal]
  - Condition aggravated [Fatal]
  - Shock [Fatal]
  - Pneumonia [Fatal]
